FAERS Safety Report 4846412-3 (Version None)
Quarter: 2005Q4

REPORT INFORMATION
  Report Type: 
  Country: None (occurrence: None)
  Receive Date: 20051206
  Receipt Date: 20051128
  Transmission Date: 20060501
  Serious: Yes (Hospitalization)
  Sender: FDA-Public Use
  Company Number: JP-GILEAD-2005-0008984

PATIENT
  Sex: Male

DRUGS (3)
  1. VIREAD [Suspect]
     Indication: HIV INFECTION
     Route: 048
     Dates: start: 20050401
  2. STOCRIN [Concomitant]
     Indication: HIV INFECTION
     Dates: start: 20010401
  3. EPIVIR [Concomitant]
     Indication: HIV INFECTION
     Dates: start: 20010401

REACTIONS (4)
  - DEPRESSED LEVEL OF CONSCIOUSNESS [None]
  - DIALYSIS [None]
  - INTENTIONAL OVERDOSE [None]
  - VOMITING [None]
